FAERS Safety Report 6959628-7 (Version None)
Quarter: 2010Q3

REPORT INFORMATION
  Report Type: 
  Country: None (occurrence: None)
  Receive Date: 20100823
  Receipt Date: 20100417
  Transmission Date: 20110219
  Serious: No
  Sender: FDA-Public Use
  Company Number: 8049997

PATIENT
  Sex: Male
  Weight: 55.5 kg

DRUGS (8)
  1. CERTOLIZUMAB PEGOL [Suspect]
     Indication: CROHN'S DISEASE
     Dosage: (400 MG 1X/28 DAYS SUBCUTANEOUS)
     Route: 058
     Dates: start: 20090731
  2. PREDNISONE [Concomitant]
  3. MESALAMINE [Concomitant]
  4. IMURAN [Concomitant]
  5. PANTOPRAZOLE [Concomitant]
  6. HYDROCODONE BITARTRATE AND ACETAMINOPHEN [Concomitant]
  7. OMEPRAZOLE [Concomitant]
  8. ALAVERT [Concomitant]

REACTIONS (6)
  - DIZZINESS [None]
  - FATIGUE [None]
  - INJECTION SITE HAEMORRHAGE [None]
  - MUSCLE SPASMS [None]
  - OEDEMA PERIPHERAL [None]
  - SYNCOPE [None]
